FAERS Safety Report 18105373 (Version 1)
Quarter: 2020Q3

REPORT INFORMATION
  Report Type: Spontaneous
  Country: DE (occurrence: DE)
  Receive Date: 20200803
  Receipt Date: 20200803
  Transmission Date: 20201103
  Serious: Yes (Hospitalization)
  Sender: FDA-Public Use
  Company Number: DE-ALSI-202000257

PATIENT
  Age: 69 Year
  Sex: Male

DRUGS (10)
  1. OXYGEN. [Suspect]
     Active Substance: OXYGEN
     Indication: IDIOPATHIC PULMONARY FIBROSIS
     Route: 065
  2. MORPHINE SULFATE. [Concomitant]
     Active Substance: MORPHINE SULFATE
  3. BACLOFEN. [Concomitant]
     Active Substance: BACLOFEN
  4. PANTOPRAZOLE [Concomitant]
     Active Substance: PANTOPRAZOLE
  5. TAMSULOSIN [Concomitant]
     Active Substance: TAMSULOSIN
  6. METOPROLOL. [Concomitant]
     Active Substance: METOPROLOL
  7. DUROGESIC (FENTANYL) [Concomitant]
     Active Substance: FENTANYL
  8. VIANI (FLUTICASONE PROPIONATE; SALMETEROL XINAFOATE) [Concomitant]
  9. ESBRIET [Suspect]
     Active Substance: PIRFENIDONE
     Route: 048
     Dates: start: 20180314
  10. SALBUTAMOL [Concomitant]
     Active Substance: ALBUTEROL

REACTIONS (8)
  - Taste disorder [Recovering/Resolving]
  - Fatigue [Recovering/Resolving]
  - Dry skin [Recovering/Resolving]
  - Pneumonia [Recovered/Resolved]
  - Chronic obstructive pulmonary disease [Unknown]
  - Parosmia [Recovering/Resolving]
  - Rash [Recovered/Resolved]
  - Dysphonia [Not Recovered/Not Resolved]
